FAERS Safety Report 7627355-9 (Version None)
Quarter: 2011Q3

REPORT INFORMATION
  Report Type: 
  Country: None (occurrence: None)
  Receive Date: 20110721
  Receipt Date: 20110711
  Transmission Date: 20111222
  Serious: Yes (Hospitalization)
  Sender: FDA-Public Use
  Company Number: US-ELI_LILLY_AND_COMPANY-US201003004420

PATIENT
  Sex: Female
  Weight: 91.156 kg

DRUGS (13)
  1. FORTEO [Suspect]
     Dosage: 20 UG, QD
     Route: 065
     Dates: start: 20110616
  2. CARDIOVASCULAR SYSTEM DRUGS [Concomitant]
     Indication: BLOOD PRESSURE ABNORMAL
     Dosage: UNK, UNKNOWN
  3. TRICOR [Concomitant]
  4. AVALIDE [Concomitant]
  5. LEXAPRO [Concomitant]
  6. CELEBREX [Concomitant]
  7. CYCLOBENZAPRINE [Concomitant]
  8. FORTEO [Suspect]
     Indication: OSTEOPOROSIS
     Dosage: 20 UG, QD
     Route: 065
     Dates: start: 20091201
  9. FORTEO [Suspect]
     Dosage: 20 UG, QD
  10. LIPITOR [Concomitant]
  11. PROTONIX [Concomitant]
  12. FISH OIL [Concomitant]
  13. FORTEO [Suspect]
     Dosage: 20 UG, QD

REACTIONS (10)
  - INJECTION SITE HAEMATOMA [None]
  - DIZZINESS [None]
  - INJECTION SITE ERYTHEMA [None]
  - GASTROOESOPHAGEAL REFLUX DISEASE [None]
  - HEADACHE [None]
  - BRONCHITIS [None]
  - ASTHENIA [None]
  - INJECTION SITE PAIN [None]
  - HORMONE THERAPY [None]
  - MUSCLE SPASMS [None]
